FAERS Safety Report 8495655-9 (Version None)
Quarter: 2012Q3

REPORT INFORMATION
  Report Type: 
  Country: None (occurrence: None)
  Receive Date: 20120709
  Receipt Date: 20120629
  Transmission Date: 20120928
  Serious: Yes (Other)
  Sender: FDA-Public Use
  Company Number: JP-BAYER-200911275BYL

PATIENT
  Age: 69 Year
  Sex: Male

DRUGS (13)
  1. FERRIC HYDROXIDE POLYMALTOSE COMPLEX [Concomitant]
     Dosage: 1 DF (DAILY DOSE), , ORAL
     Route: 048
     Dates: start: 20090113
  2. TRANSAMINE CAP [Concomitant]
     Dosage: 3 DF (DAILY DOSE), , ORAL
     Route: 048
     Dates: start: 20090204
  3. LAMISIL [Concomitant]
     Indication: TINEA PEDIS
     Route: 061
     Dates: start: 20090227
  4. NEXAVAR [Suspect]
     Dosage: 400 MG (DAILY DOSE), , ORAL
     Route: 048
     Dates: start: 20090819, end: 20090915
  5. NEXAVAR [Suspect]
     Indication: RENAL CELL CARCINOMA
     Route: 048
     Dates: start: 20090113, end: 20090313
  6. NEXAVAR [Suspect]
     Dosage: 400 MG (DAILY DOSE), , ORAL
     Route: 048
     Dates: start: 20090406, end: 20090412
  7. LEVOTHYROXINE SODIUM [Concomitant]
     Dosage: 100 ?G (DAILY DOSE), , ORAL
     Route: 048
     Dates: start: 20090216
  8. ADONA [Concomitant]
     Dosage: 90 MG (DAILY DOSE), , ORAL
     Route: 048
     Dates: start: 20090204
  9. NEXAVAR [Suspect]
     Dosage: 400 MG, BID
     Route: 048
     Dates: start: 20090916, end: 20120601
  10. FELODIPINE [Concomitant]
     Route: 048
  11. NEXAVAR [Suspect]
     Dosage: 800 MG (DAILY DOSE), , ORAL
     Route: 048
     Dates: start: 20090413, end: 20090818
  12. ALMARL [Concomitant]
     Route: 048
  13. LEVOTHYROXINE SODIUM [Concomitant]
     Indication: HYPOTHYROIDISM
     Dosage: 50 ?G (DAILY DOSE), , ORAL
     Route: 048
     Dates: start: 20090120, end: 20090215

REACTIONS (4)
  - HYPERTENSION [None]
  - HAEMATURIA [None]
  - HYPOTHYROIDISM [None]
  - HEPATIC FUNCTION ABNORMAL [None]
